FAERS Safety Report 4477045-9 (Version None)
Quarter: 2004Q4

REPORT INFORMATION
  Report Type: 
  Country: None (occurrence: None)
  Receive Date: 20041018
  Receipt Date: 20041006
  Transmission Date: 20050328
  Serious: Yes (Other)
  Sender: FDA-Public Use
  Company Number: FR-BRISTOL-MYERS SQUIBB COMPANY-12726410

PATIENT

DRUGS (5)
  1. REYATAZ [Suspect]
     Indication: HIV INFECTION
     Route: 048
  2. BLEOMYCIN [Concomitant]
     Indication: KAPOSI'S SARCOMA
  3. ADRIAMYCIN PFS [Concomitant]
     Indication: KAPOSI'S SARCOMA
  4. VINBLASTINE SULFATE [Concomitant]
     Indication: KAPOSI'S SARCOMA
  5. DETICENE [Concomitant]
     Indication: KAPOSI'S SARCOMA

REACTIONS (3)
  - APLASIA [None]
  - HYPERBILIRUBINAEMIA [None]
  - ILEUS [None]
